FAERS Safety Report 23516729 (Version 1)
Quarter: 2024Q1

REPORT INFORMATION
  Report Type: 
  Country: None (occurrence: None)
  Receive Date: 20240213
  Receipt Date: 20240213
  Transmission Date: 20240409
  Serious: No
  Sender: FDA-Public Use
  Company Number: US-ROCHE-3499730

PATIENT

DRUGS (2)
  1. VABYSMO [Suspect]
     Active Substance: FARICIMAB\FARICIMAB-SVOA
     Dates: start: 20230202, end: 20230309
  2. LUCENTIS [Suspect]
     Active Substance: RANIBIZUMAB

REACTIONS (1)
  - Death [None]
